FAERS Safety Report 24320967 (Version 1)
Quarter: 2024Q3

REPORT INFORMATION
  Report Type: Spontaneous
  Country: US (occurrence: US)
  Receive Date: 20240915
  Receipt Date: 20240915
  Transmission Date: 20241017
  Serious: Yes (Death, Other)
  Sender: BRISTOL MYERS SQUIBB
  Company Number: US-BRISTOL-MYERS SQUIBB COMPANY-2024-145879

PATIENT
  Age: 62 Year
  Sex: Male

DRUGS (3)
  1. OPDIVO [Suspect]
     Active Substance: NIVOLUMAB
     Indication: Lung neoplasm malignant
     Dosage: OPDIVO 240 MG VIAL
     Route: 042
     Dates: end: 20240814
  2. OPDIVO [Suspect]
     Active Substance: NIVOLUMAB
     Dosage: 120 MG VIAL
     Route: 042
     Dates: end: 20240814
  3. YERVOY [Suspect]
     Active Substance: IPILIMUMAB
     Indication: Lung neoplasm malignant
     Dosage: YERVOY 50 MG VIAL
     Route: 042
     Dates: end: 20240814

REACTIONS (2)
  - Death [Fatal]
  - Off label use [Unknown]
